FAERS Safety Report 22293350 (Version 1)
Quarter: 2023Q2

REPORT INFORMATION
  Report Type: Spontaneous
  Country: US (occurrence: US)
  Receive Date: 20230508
  Receipt Date: 20230508
  Transmission Date: 20230722
  Serious: No
  Sender: FDA-Public Use
  Company Number: US-CIPLA LTD.-2022US06947

PATIENT

DRUGS (4)
  1. AMBRISENTAN [Suspect]
     Active Substance: AMBRISENTAN
     Indication: Pulmonary hypertension
     Dosage: 5 MILLIGRAM DAILY
     Route: 065
     Dates: start: 202208, end: 202209
  2. AMBRISENTAN [Suspect]
     Active Substance: AMBRISENTAN
     Dosage: 10 MILLIGRAM DAILY
     Route: 065
     Dates: start: 202209, end: 202211
  3. TADALAFIL [Concomitant]
     Active Substance: TADALAFIL
     Indication: Pulmonary arterial hypertension
     Dosage: 2 DOSAGE FORM, QD (2 TABLETS ONCE A DAY)
     Route: 065
     Dates: start: 2022, end: 202211
  4. TADALAFIL [Concomitant]
     Active Substance: TADALAFIL
     Dosage: UNK UNK, QD (HALF A TABLET A DAY)
     Route: 065
     Dates: start: 20221115

REACTIONS (4)
  - Vomiting [Unknown]
  - Headache [Unknown]
  - Nausea [Unknown]
  - Nasal congestion [Unknown]

NARRATIVE: CASE EVENT DATE: 20220801
